FAERS Safety Report 11541333 (Version 2)
Quarter: 2015Q4

REPORT INFORMATION
  Report Type: Report from Study
  Country: ES (occurrence: ES)
  Receive Date: 20150923
  Receipt Date: 20151001
  Transmission Date: 20160304
  Serious: Yes (Other)
  Sender: FDA-Public Use
  Company Number: ES-ABBVIE-15P-144-1466009-00

PATIENT
  Age: 82 Year
  Sex: Female

DRUGS (2)
  1. DUODOPA [Suspect]
     Active Substance: CARBIDOPA\LEVODOPA
     Indication: PARKINSON^S DISEASE
     Route: 050
     Dates: start: 201010
  2. RIVOTRIL [Concomitant]
     Active Substance: CLONAZEPAM
     Indication: PRODUCT USED FOR UNKNOWN INDICATION
     Dates: start: 201505

REACTIONS (9)
  - Decreased appetite [Unknown]
  - Dementia [Unknown]
  - Depression [Unknown]
  - Weight decreased [Unknown]
  - Dysphagia [Unknown]
  - Dementia Alzheimer^s type [Unknown]
  - Agitation [Unknown]
  - Dementia Alzheimer^s type [Unknown]
  - Freezing phenomenon [Unknown]

NARRATIVE: CASE EVENT DATE: 2015
